FAERS Safety Report 7971084-9 (Version None)
Quarter: 2011Q4

REPORT INFORMATION
  Report Type: 
  Country: None (occurrence: None)
  Receive Date: 20111212
  Receipt Date: 20111212
  Transmission Date: 20120403
  Serious: Yes (Other)
  Sender: FDA-Public Use
  Company Number: None

PATIENT
  Age: 35 Year
  Sex: Female
  Weight: 56.699 kg

DRUGS (1)
  1. LIALDA [Suspect]
     Indication: COLITIS
     Dosage: 1 PILL
     Route: 048

REACTIONS (4)
  - HAEMATOCHEZIA [None]
  - ABDOMINAL PAIN [None]
  - ECONOMIC PROBLEM [None]
  - RENAL PAIN [None]
